FAERS Safety Report 14141567 (Version 1)
Quarter: 2017Q4

REPORT INFORMATION
  Report Type: Spontaneous
  Country: US (occurrence: US)
  Receive Date: 20171028
  Receipt Date: 20171028
  Transmission Date: 20180321
  Serious: No
  Sender: FDA-Public Use
  Company Number: None

PATIENT
  Age: 33 Year
  Sex: Female
  Weight: 62.55 kg

DRUGS (4)
  1. FLONASE [Concomitant]
     Active Substance: FLUTICASONE PROPIONATE
  2. MULTIVITAMIN [Concomitant]
     Active Substance: VITAMINS
  3. IBUPROFEN. [Concomitant]
     Active Substance: IBUPROFEN
  4. AMOXICILLIN. [Suspect]
     Active Substance: AMOXICILLIN
     Indication: PHARYNGITIS STREPTOCOCCAL
     Dosage: ?          QUANTITY:1 TABLET(S);EVERY 12 HOURS ORAL?
     Route: 048
     Dates: start: 20171027

REACTIONS (1)
  - Tinnitus [None]

NARRATIVE: CASE EVENT DATE: 20171028
